FAERS Safety Report 16321515 (Version 1)
Quarter: 2019Q2

REPORT INFORMATION
  Report Type: Spontaneous
  Country: US (occurrence: US)
  Receive Date: 20190516
  Receipt Date: 20190516
  Transmission Date: 20190711
  Serious: No
  Sender: FDA-Public Use
  Company Number: US-TEVA-2019-US-1049312

PATIENT
  Age: 62 Year
  Sex: Male

DRUGS (2)
  1. ESCITALOPRAM [Suspect]
     Active Substance: ESCITALOPRAM OXALATE
     Dates: start: 20190430
  2. ESCITALOPRAM [Suspect]
     Active Substance: ESCITALOPRAM OXALATE
     Indication: DEPRESSION
     Dates: start: 201904

REACTIONS (5)
  - Fall [Unknown]
  - Therapeutic product effect decreased [Unknown]
  - Balance disorder [Unknown]
  - Therapeutic product effect incomplete [Unknown]
  - Vision blurred [Unknown]
